FAERS Safety Report 9879357 (Version 1)
Quarter: 2014Q1

REPORT INFORMATION
  Report Type: Spontaneous
  Country: US (occurrence: US)
  Receive Date: 20140206
  Receipt Date: 20140206
  Transmission Date: 20141002
  Serious: Yes (Other)
  Sender: FDA-Public Use
  Company Number: US-SA-2014SA014681

PATIENT
  Age: 52 Year
  Sex: Female

DRUGS (2)
  1. LANTUS SOLOSTAR [Suspect]
     Dosage: DOSE:16 UNIT(S)
     Route: 058
  2. SOLOSTAR [Concomitant]

REACTIONS (3)
  - Fall [Unknown]
  - Humerus fracture [Unknown]
  - Fracture pain [Unknown]
